FAERS Safety Report 26059720 (Version 1)
Quarter: 2025Q4

REPORT INFORMATION
  Report Type: Spontaneous
  Country: US (occurrence: US)
  Receive Date: 20251118
  Receipt Date: 20251118
  Transmission Date: 20260117
  Serious: No
  Sender: BAYER HEALTHCARE PHARMACEUTICALS INC.
  Company Number: US-BAYER-2025A152007

PATIENT
  Age: 58 Year
  Sex: Female

DRUGS (1)
  1. MIRENA [Suspect]
     Active Substance: LEVONORGESTREL
     Indication: Hormone replacement therapy
     Dosage: 20?G/DAY
     Route: 015
     Dates: start: 20250727

REACTIONS (2)
  - Genital haemorrhage [None]
  - Device use issue [None]
